FAERS Safety Report 7000486-2 (Version None)
Quarter: 2010Q3

REPORT INFORMATION
  Report Type: 
  Country: None (occurrence: None)
  Receive Date: 20100920
  Receipt Date: 20100909
  Transmission Date: 20110219
  Serious: Yes (Hospitalization)
  Sender: FDA-Public Use
  Company Number: US-NOVOPROD-314554

PATIENT
  Age: 52 Year
  Sex: Female
  Weight: 113.38 kg

DRUGS (8)
  1. VICTOZA [Suspect]
     Indication: TYPE 2 DIABETES MELLITUS
     Dosage: 1.8 MG, QD
     Route: 058
     Dates: start: 20100701, end: 20100903
  2. PLAVIX [Concomitant]
     Indication: ATRIOVENTRICULAR BLOCK
     Dosage: UNK
  3. ASPIRIN [Concomitant]
     Indication: ATRIOVENTRICULAR BLOCK
     Dosage: UNK
  4. NOVOLOG [Concomitant]
     Indication: TYPE 2 DIABETES MELLITUS
     Dosage: SLIDING SCALE
     Route: 058
  5. METOPROLOL [Concomitant]
     Indication: ATRIOVENTRICULAR BLOCK
     Dosage: UNK
  6. COUMADIN [Concomitant]
     Indication: THROMBOSIS
  7. TRICOR [Concomitant]
     Indication: BLOOD TRIGLYCERIDES INCREASED
     Dosage: UNK
  8. LOVAZA [Concomitant]
     Indication: BLOOD TRIGLYCERIDES INCREASED
     Dosage: UNK

REACTIONS (2)
  - GLYCOSYLATED HAEMOGLOBIN DECREASED [None]
  - PANCREATITIS [None]
